FAERS Safety Report 7897981-0 (Version None)
Quarter: 2011Q4

REPORT INFORMATION
  Report Type: 
  Country: None (occurrence: None)
  Receive Date: 20111107
  Receipt Date: 20111107
  Transmission Date: 20120403
  Serious: Yes (Hospitalization)
  Sender: FDA-Public Use
  Company Number: None

PATIENT
  Age: 60 Year
  Sex: Female
  Weight: 58.967 kg

DRUGS (2)
  1. HYOSCYAMINE ER 0.375MG [Suspect]
     Indication: IRRITABLE BOWEL SYNDROME
     Dosage: 1/2 TABLET
     Route: 048
     Dates: start: 19890101, end: 20111004
  2. NITROFURANTOIN MONO 100MG [Concomitant]
     Indication: URINARY TRACT INFECTION
     Dosage: 1 CAPSULE
     Route: 048
     Dates: start: 20111003, end: 20111004

REACTIONS (8)
  - DRY MOUTH [None]
  - MOTOR DYSFUNCTION [None]
  - FEELING DRUNK [None]
  - GAIT DISTURBANCE [None]
  - NAUSEA [None]
  - DYSPHAGIA [None]
  - OVERDOSE [None]
  - DIZZINESS [None]
